FAERS Safety Report 8047897-4 (Version None)
Quarter: 2012Q1

REPORT INFORMATION
  Report Type: 
  Country: None (occurrence: None)
  Receive Date: 20120116
  Receipt Date: 20120111
  Transmission Date: 20120608
  Serious: Yes (Other)
  Sender: FDA-Public Use
  Company Number: US-BAYER-2012-004239

PATIENT
  Sex: Female

DRUGS (3)
  1. TYLENOL (CAPLET) [Concomitant]
     Indication: ABDOMINAL PAIN
  2. ALEVE (CAPLET) [Suspect]
     Indication: ABDOMINAL PAIN
     Dosage: UNK
     Route: 048
  3. METHOTREXATE [Concomitant]
     Indication: ECTOPIC PREGNANCY

REACTIONS (3)
  - VAGINAL HAEMORRHAGE [None]
  - ABDOMINAL PAIN [None]
  - PRESYNCOPE [None]
